FAERS Safety Report 9832655 (Version 2)
Quarter: 2014Q1

REPORT INFORMATION
  Report Type: Report from Study
  Country: CO (occurrence: CO)
  Receive Date: 20140121
  Receipt Date: 20140121
  Transmission Date: 20141002
  Serious: Yes (Hospitalization)
  Sender: FDA-Public Use
  Company Number: CO-BRISTOL-MYERS SQUIBB COMPANY-19963644

PATIENT
  Age: 44 Year
  Sex: Female

DRUGS (1)
  1. IXEMPRA FOR INJ [Suspect]
     Indication: BREAST CANCER METASTATIC
     Route: 042
     Dates: start: 20131127

REACTIONS (4)
  - Malignant neoplasm progression [Unknown]
  - Pleural effusion [Recovering/Resolving]
  - Dyspnoea [Recovering/Resolving]
  - Inflammation [Recovering/Resolving]
